FAERS Safety Report 8339006-9 (Version None)
Quarter: 2012Q2

REPORT INFORMATION
  Report Type: 
  Country: None (occurrence: None)
  Receive Date: 20120507
  Receipt Date: 20120425
  Transmission Date: 20120825
  Serious: Yes (Hospitalization)
  Sender: FDA-Public Use
  Company Number: CN-BAYER-2012-040080

PATIENT
  Sex: Female

DRUGS (1)
  1. MIRENA [Suspect]
     Indication: CONTRACEPTION
     Dosage: 20 MCG/24HR, CONT
     Route: 015
     Dates: start: 20100401, end: 20120401

REACTIONS (5)
  - DYSPNOEA [None]
  - FACE OEDEMA [None]
  - PULMONARY HYPERTENSION [None]
  - CARDIAC FAILURE [None]
  - OEDEMA PERIPHERAL [None]
